FAERS Safety Report 16938911 (Version 1)
Quarter: 2019Q4

REPORT INFORMATION
  Report Type: Spontaneous
  Country: US (occurrence: US)
  Receive Date: 20190828
  Receipt Date: 20190828
  Transmission Date: 20200122
  Serious: Yes (Disabling)
  Sender: FDA-Public Use
  Company Number: None

PATIENT
  Age: 62 Year
  Sex: Female
  Weight: 65.77 kg

DRUGS (10)
  1. LEVOTHYROXINE 50 MCG [Suspect]
     Active Substance: LEVOTHYROXINE
     Indication: LABORATORY TEST INTERFERENCE
     Route: 048
     Dates: end: 20100810
  2. OLMESARTAN [Concomitant]
     Active Substance: OLMESARTAN
  3. ROSUVASTATIN. [Concomitant]
     Active Substance: ROSUVASTATIN
  4. ROPINIROLE. [Concomitant]
     Active Substance: ROPINIROLE
  5. LEVOTHYROXINE 50 MCG [Suspect]
     Active Substance: LEVOTHYROXINE
     Indication: BLOOD THYROID STIMULATING HORMONE INCREASED
     Route: 048
     Dates: end: 20100810
  6. SELEGILINE [Concomitant]
     Active Substance: SELEGILINE
  7. CARBODOPA/LEVODOPA [Concomitant]
  8. APAP/CODEINE [Concomitant]
     Active Substance: ACETAMINOPHEN\CODEINE PHOSPHATE
  9. GLIMIPIRIDE [Concomitant]
     Active Substance: GLIMEPIRIDE
  10. SPIRONOLACTONE. [Concomitant]
     Active Substance: SPIRONOLACTONE

REACTIONS (2)
  - Parkinsonism [None]
  - Thyroid disorder [None]
